FAERS Safety Report 20102585 (Version 3)
Quarter: 2022Q1

REPORT INFORMATION
  Report Type: Spontaneous
  Country: US (occurrence: US)
  Receive Date: 20211123
  Receipt Date: 20220222
  Transmission Date: 20220423
  Serious: No
  Sender: FDA-Public Use
  Company Number: US-PFIZER INC-2021866416

PATIENT
  Age: 74 Year
  Sex: Female

DRUGS (2)
  1. IBRANCE [Suspect]
     Active Substance: PALBOCICLIB
     Indication: Breast cancer female
     Dosage: 100 MG, CYCLIC (I HAVE IS, 100MG TABLET AND I TAKE 21 OF THEM AND THEN I HAD 7 DAYS OFF.)
     Dates: start: 201904
  2. ELIQUIS [Concomitant]
     Active Substance: APIXABAN
     Dosage: 5 MG, 2X/DAY (ONE TABLET TWICE DAILY)

REACTIONS (3)
  - White blood cell count abnormal [Unknown]
  - Red blood cell abnormality [Unknown]
  - Full blood count abnormal [Unknown]
